FAERS Safety Report 5776425-9 (Version None)
Quarter: 2008Q2

REPORT INFORMATION
  Report Type: 
  Country: None (occurrence: None)
  Receive Date: 20080618
  Receipt Date: 20080613
  Transmission Date: 20081010
  Serious: Yes (Death, Hospitalization)
  Sender: FDA-Public Use
  Company Number: PHHY2008FR09952

PATIENT
  Sex: Female

DRUGS (1)
  1. ZOLEDRONIC ACID [Suspect]
     Indication: OSTEOPOROSIS PROPHYLAXIS
     Dosage: 5 MG
     Route: 042

REACTIONS (5)
  - CARDIAC DISORDER [None]
  - DEATH [None]
  - DYSPNOEA [None]
  - INFLUENZA LIKE ILLNESS [None]
  - LUNG DISORDER [None]
